FAERS Safety Report 5993484-9 (Version None)
Quarter: 2008Q4

REPORT INFORMATION
  Report Type: 
  Country: None (occurrence: None)
  Receive Date: 20081212
  Receipt Date: 20081204
  Transmission Date: 20090506
  Serious: Yes (Life-Threatening, Hospitalization, Other)
  Sender: FDA-Public Use
  Company Number: CO-BAYER-200822423LA

PATIENT
  Age: 42 Year
  Sex: Female
  Weight: 64 kg

DRUGS (2)
  1. MIRENA [Suspect]
     Indication: CONTRACEPTION
     Route: 015
     Dates: start: 20060929
  2. CONTRAST MEDIA [Concomitant]
     Indication: CEREBROVASCULAR DISORDER
     Route: 042
     Dates: start: 20080725, end: 20080725

REACTIONS (4)
  - HEADACHE [None]
  - PITUITARY TUMOUR BENIGN [None]
  - SCOTOMA [None]
  - VISUAL FIELD DEFECT [None]
